FAERS Safety Report 12898190 (Version 2)
Quarter: 2017Q2

REPORT INFORMATION
  Report Type: Spontaneous
  Country: US (occurrence: US)
  Receive Date: 20161031
  Receipt Date: 20170623
  Transmission Date: 20170830
  Serious: Yes (Hospitalization)
  Sender: FDA-Public Use
  Company Number: US-MALLINCKRODT-T201604673

PATIENT
  Age: 8 Month
  Sex: Male

DRUGS (8)
  1. PYRIDOXINE [Concomitant]
     Active Substance: PYRIDOXINE
  2. ZONISAMIDE. [Concomitant]
     Active Substance: ZONISAMIDE
     Dosage: 50 MG BID
     Route: 048
  3. H.P. ACTHAR [Suspect]
     Active Substance: CORTICOTROPIN
     Dosage: ^150 U/ML^; UNK
     Dates: start: 20160928
  4. RANITIDINE. [Concomitant]
     Active Substance: RANITIDINE
     Dosage: 0. 6 ML TWO TIMES DAILY
     Route: 048
  5. SABRIL [Concomitant]
     Active Substance: VIGABATRIN
     Dosage: 1000 MG
     Route: 048
  6. H.P. ACTHAR [Suspect]
     Active Substance: CORTICOTROPIN
     Dosage: 32UNITS/0.4 ML TWICE DAILY;FOLLOWDISCHARGE INSTRUCTIONS FOR WEAN.
     Route: 030
     Dates: start: 201609
  7. SABRIL [Concomitant]
     Active Substance: VIGABATRIN
     Dosage: 500 MG IN AM  AND 750 MG IN PM
     Route: 048
  8. H.P. ACTHAR [Suspect]
     Active Substance: CORTICOTROPIN
     Indication: INFANTILE SPASMS
     Dosage: 0.1 ML DAILY
     Route: 030
     Dates: start: 20160824

REACTIONS (4)
  - Insomnia [Unknown]
  - Seizure [Unknown]
  - Hyperphagia [Unknown]
  - Irritability [Unknown]

NARRATIVE: CASE EVENT DATE: 201609
